FAERS Safety Report 19307833 (Version 1)
Quarter: 2021Q2

REPORT INFORMATION
  Report Type: Spontaneous
  Country: US (occurrence: US)
  Receive Date: 20210526
  Receipt Date: 20210526
  Transmission Date: 20210717
  Serious: No
  Sender: FDA-Public Use
  Company Number: None

PATIENT
  Age: 8 Year
  Sex: Female
  Weight: 37.8 kg

DRUGS (2)
  1. CLINDAMYCIN. [Concomitant]
     Active Substance: CLINDAMYCIN
  2. LUPRON DEPOT?PED [Suspect]
     Active Substance: LEUPROLIDE ACETATE
     Indication: PRECOCIOUS PUBERTY
     Dosage: ?          QUANTITY:1 INJECTION(S);OTHER FREQUENCY:3 MONTHS;?
     Route: 030
     Dates: start: 20210202, end: 20210504

REACTIONS (4)
  - Pain [None]
  - Discomfort [None]
  - Injection site abscess [None]
  - Gait disturbance [None]

NARRATIVE: CASE EVENT DATE: 20210512
